FAERS Safety Report 4501040-4 (Version None)
Quarter: 2004Q4

REPORT INFORMATION
  Report Type: 
  Country: None (occurrence: None)
  Receive Date: 20041109
  Receipt Date: 20041022
  Transmission Date: 20050328
  Serious: Yes (Death)
  Sender: FDA-Public Use
  Company Number: US_0410107265

PATIENT
  Age: 32 Year
  Sex: Female

DRUGS (3)
  1. CYMBALTA [Suspect]
     Indication: DEPRESSION
     Dosage: 30 MG DAY
     Dates: start: 20041012, end: 20041014
  2. ALBUTEROL [Concomitant]
  3. MOTRIN (IBUPROFEN0 [Concomitant]

REACTIONS (2)
  - GUN SHOT WOUND [None]
  - VICTIM OF HOMICIDE [None]
